FAERS Safety Report 9106656 (Version 2)
Quarter: 2013Q1

REPORT INFORMATION
  Report Type: Spontaneous
  Country: IT (occurrence: IT)
  Receive Date: 20130221
  Receipt Date: 20130305
  Transmission Date: 20140127
  Serious: Yes (Hospitalization)
  Sender: FDA-Public Use
  Company Number: IT-ABBOTT-13P-083-1050739-00

PATIENT
  Age: 82 Year
  Sex: Female

DRUGS (3)
  1. KLACID [Suspect]
     Indication: BRONCHOPNEUMONIA
     Route: 048
     Dates: start: 20130206, end: 20130214
  2. COUMADIN [Interacting]
     Indication: PRODUCT USED FOR UNKNOWN INDICATION
     Route: 048
     Dates: start: 20130206, end: 20130208
  3. UNASYN [Interacting]
     Indication: BRONCHOPNEUMONIA
     Dosage: FORM STRENGTH: 1G+2G
     Route: 042
     Dates: start: 20130206, end: 20130214

REACTIONS (2)
  - Drug interaction [Unknown]
  - International normalised ratio increased [Not Recovered/Not Resolved]
